FAERS Safety Report 5405885-8 (Version None)
Quarter: 2007Q3

REPORT INFORMATION
  Report Type: 
  Country: None (occurrence: None)
  Receive Date: 20070806
  Receipt Date: 20070806
  Transmission Date: 20080115
  Serious: Yes (Other)
  Sender: FDA-Public Use
  Company Number: None

PATIENT
  Age: 38 Year
  Sex: Female
  Weight: 67.1324 kg

DRUGS (2)
  1. MIFEPREX [Suspect]
     Indication: ABORTION INDUCED
     Dosage: 1 PILL ONCE PO
     Route: 048
     Dates: start: 20070305, end: 20070305
  2. MISOPROSTOL [Suspect]
     Indication: ABORTION INDUCED
     Dosage: 4 PILLS ONCE VAG
     Route: 067
     Dates: start: 20070306, end: 20070306

REACTIONS (16)
  - ANURIA [None]
  - ASTHENIA [None]
  - CONDITION AGGRAVATED [None]
  - EMOTIONAL DISTRESS [None]
  - FATIGUE [None]
  - FEELING ABNORMAL [None]
  - FLATULENCE [None]
  - FLUID INTAKE REDUCED [None]
  - GASTRIC DISORDER [None]
  - GASTRIC INFECTION [None]
  - GASTROINTESTINAL DISORDER [None]
  - INFECTION [None]
  - ORAL INTAKE REDUCED [None]
  - VAGINAL DISCHARGE [None]
  - VAGINAL ODOUR [None]
  - WHITE BLOOD CELL COUNT INCREASED [None]
